FAERS Safety Report 5149471-6 (Version None)
Quarter: 2006Q4

REPORT INFORMATION
  Report Type: 
  Country: None (occurrence: None)
  Receive Date: 20061113
  Receipt Date: 20060201
  Transmission Date: 20070319
  Serious: No
  Sender: FDA-Public Use
  Company Number: 434638

PATIENT
  Age: 71 Year
  Sex: Male

DRUGS (3)
  1. COREG [Suspect]
     Indication: DRUG USE FOR UNKNOWN INDICATION
     Dosage: 6.25MG TWICE PER DAY
     Route: 048
     Dates: start: 20060111
  2. LISINOPRIL [Concomitant]
  3. LANOXIN [Concomitant]

REACTIONS (1)
  - OEDEMA PERIPHERAL [None]
